FAERS Safety Report 14640380 (Version 1)
Quarter: 2018Q1

REPORT INFORMATION
  Report Type: Spontaneous
  Country: US (occurrence: US)
  Receive Date: 20180314
  Receipt Date: 20180314
  Transmission Date: 20180509
  Serious: Yes (Hospitalization)
  Sender: FDA-Public Use
  Company Number: None

PATIENT
  Sex: Male

DRUGS (11)
  1. LOSARTAN. [Concomitant]
     Active Substance: LOSARTAN
  2. PANTOPRAZOLE [Concomitant]
     Active Substance: PANTOPRAZOLE
  3. METOPROLOL. [Concomitant]
     Active Substance: METOPROLOL
  4. HUMIRA [Suspect]
     Active Substance: ADALIMUMAB
     Indication: PSORIATIC ARTHROPATHY
     Route: 058
     Dates: start: 20170622
  5. TAMSULOSIN [Concomitant]
     Active Substance: TAMSULOSIN
  6. AMLODIPINE [Concomitant]
     Active Substance: AMLODIPINE BESYLATE
  7. MESALAMINE. [Concomitant]
     Active Substance: MESALAMINE
  8. KCL [Concomitant]
     Active Substance: POTASSIUM CHLORIDE
  9. ATENOLOL. [Concomitant]
     Active Substance: ATENOLOL
  10. CLOPIDOGREL [Concomitant]
     Active Substance: CLOPIDOGREL BISULFATE
  11. VENTOLIN [Concomitant]
     Active Substance: ALBUTEROL SULFATE

REACTIONS (2)
  - Psoriatic arthropathy [None]
  - Infection [None]
